FAERS Safety Report 7318143-1 (Version None)
Quarter: 2011Q1

REPORT INFORMATION
  Report Type: 
  Country: None (occurrence: None)
  Receive Date: 20110228
  Receipt Date: 20110216
  Transmission Date: 20110831
  Serious: No
  Sender: FDA-Public Use
  Company Number: US-BIOGENIDEC-2011BI001949

PATIENT
  Age: 55 Year
  Sex: Female

DRUGS (6)
  1. TYSABRI [Suspect]
     Indication: MULTIPLE SCLEROSIS
     Route: 042
     Dates: start: 20101117, end: 20101215
  2. CLARITIN [Concomitant]
     Indication: PREMEDICATION
  3. TYLENOL [Concomitant]
     Indication: PREMEDICATION
  4. AVONEX [Concomitant]
     Indication: MULTIPLE SCLEROSIS
     Route: 030
     Dates: start: 20001101, end: 20101023
  5. BENADRYL [Concomitant]
     Indication: PREMEDICATION
  6. TYSABRI [Suspect]
     Route: 042
     Dates: start: 20041229

REACTIONS (1)
  - HYPERSENSITIVITY [None]
